FAERS Safety Report 8092463-8 (Version None)
Quarter: 2012Q1

REPORT INFORMATION
  Report Type: 
  Country: None (occurrence: None)
  Receive Date: 20120128
  Receipt Date: 20110818
  Transmission Date: 20120608
  Serious: No
  Sender: FDA-Public Use
  Company Number: US-ABBOTT-11P-163-0842385-00

PATIENT
  Sex: Female
  Weight: 52.21 kg

DRUGS (3)
  1. CITALOPRAM [Concomitant]
     Indication: ANXIETY
  2. HUMIRA [Suspect]
     Indication: CROHN'S DISEASE
     Dates: start: 20090401
  3. IMURAN [Concomitant]
     Indication: CROHN'S DISEASE

REACTIONS (3)
  - DEVICE MALFUNCTION [None]
  - INCORRECT DOSE ADMINISTERED [None]
  - INJECTION SITE NODULE [None]
